FAERS Safety Report 10638685 (Version 1)
Quarter: 2014Q4

REPORT INFORMATION
  Report Type: Spontaneous
  Country: ES (occurrence: None)
  Receive Date: 20141204
  Receipt Date: 20141204
  Transmission Date: 20150529
  Serious: Yes (Other)
  Sender: FDA-Public Use
  Company Number: 2014-20804

PATIENT
  Age: 67 Year
  Sex: Female

DRUGS (3)
  1. VEGF TRAP-EYE [Suspect]
     Active Substance: AFLIBERCEPT
     Indication: PRODUCT USED FOR UNKNOWN INDICATION
     Dates: start: 20141111
  2. LUCENTIS (RANIBIZUMAB) [Concomitant]
  3. VERSATIS (LIDOCAINE) [Concomitant]

REACTIONS (1)
  - Palpitations [None]

NARRATIVE: CASE EVENT DATE: 20141111
